FAERS Safety Report 6506850-X (Version None)
Quarter: 2009Q4

REPORT INFORMATION
  Report Type: 
  Country: None (occurrence: None)
  Receive Date: 20091221
  Receipt Date: 20091214
  Transmission Date: 20100525
  Serious: Yes (Hospitalization)
  Sender: FDA-Public Use
  Company Number: KR-ELI_LILLY_AND_COMPANY-KR200812005140

PATIENT
  Sex: Female
  Weight: 55 kg

DRUGS (12)
  1. PEMETREXED [Suspect]
     Indication: NON-SMALL CELL LUNG CANCER
     Dosage: 500 MG/M2, UNKNOWN
     Route: 042
     Dates: start: 20080829
  2. FOLIC ACID [Concomitant]
     Indication: PREMEDICATION
     Dosage: 1 MG, UNKNOWN
     Route: 048
     Dates: start: 20080919, end: 20081010
  3. VITAMIN B-12 [Concomitant]
     Indication: PREMEDICATION
     Dosage: 1 MG, UNKNOWN
     Route: 030
     Dates: start: 20080822, end: 20080822
  4. DEXAMETHASONE TAB [Concomitant]
     Indication: PREMEDICATION
     Dosage: 3.75 MG, 2/D
     Route: 048
     Dates: start: 20080918, end: 20080920
  5. BIPHENYL DICARBOXYLATE [Concomitant]
     Indication: PROPHYLAXIS
     Dosage: UNK, UNKNOWN
     Route: 065
     Dates: start: 20080919, end: 20081010
  6. CARDUUS MARIANUS [Concomitant]
     Indication: PROPHYLAXIS
     Dosage: UNK, UNKNOWN
     Route: 065
     Dates: start: 20080919, end: 20081010
  7. SUCRALFATE [Concomitant]
     Indication: ABDOMINAL PAIN UPPER
     Dosage: 200 MG, 3/D
     Route: 065
     Dates: start: 20080926, end: 20081010
  8. REBAMIPIDE [Concomitant]
     Indication: ABDOMINAL PAIN UPPER
     Dosage: 100 MG, 3/D
     Route: 065
     Dates: start: 20080926, end: 20081010
  9. SILYMARIN [Concomitant]
     Indication: PROPHYLAXIS
     Dosage: 140 MG, 2/D
     Route: 065
     Dates: start: 20080919, end: 20081010
  10. TEMAZEPAM [Concomitant]
     Indication: ABDOMINAL PAIN UPPER
     Dosage: 1.3 MG, 3/D
     Route: 065
     Dates: start: 20080926, end: 20081010
  11. MENTHOL [Concomitant]
     Indication: ABDOMINAL PAIN UPPER
     Dosage: UNK, 3/D
     Route: 065
     Dates: start: 20080926, end: 20081010
  12. SCOPOLIA CARNIOLICA [Concomitant]
     Indication: ABDOMINAL PAIN UPPER
     Dosage: 5 MG, 3/D
     Route: 065
     Dates: start: 20080926, end: 20081010

REACTIONS (5)
  - DIARRHOEA [None]
  - DIZZINESS [None]
  - FOOD POISONING [None]
  - NAUSEA [None]
  - VOMITING [None]
